FAERS Safety Report 22617354 (Version 1)
Quarter: 2023Q2

REPORT INFORMATION
  Report Type: Spontaneous
  Country: DE (occurrence: DE)
  Receive Date: 20230620
  Receipt Date: 20230620
  Transmission Date: 20230722
  Serious: Yes (Other)
  Sender: FDA-Public Use
  Company Number: None

PATIENT
  Age: 55 Year
  Sex: Female
  Weight: 135 kg

DRUGS (1)
  1. CARIPRAZINE [Suspect]
     Active Substance: CARIPRAZINE
     Indication: Schizoaffective disorder
     Dosage: 3 MG BIS VORAUSSICHTLICH 20230731
     Route: 048
     Dates: start: 20230518

REACTIONS (15)
  - Suicidal ideation [Not Recovered/Not Resolved]
  - Middle insomnia [Unknown]
  - Suicidal ideation [Not Recovered/Not Resolved]
  - Rash pruritic [Not Recovered/Not Resolved]
  - Poor quality sleep [Unknown]
  - Feeling abnormal [Unknown]
  - Pollakiuria [Not Recovered/Not Resolved]
  - Muscle spasms [Not Recovered/Not Resolved]
  - Libido decreased [Not Recovered/Not Resolved]
  - Urine output increased [Not Recovered/Not Resolved]
  - Sleep disorder [Unknown]
  - Mood altered [Not Recovered/Not Resolved]
  - Decreased appetite [Unknown]
  - Depression [Unknown]
  - Insomnia [Unknown]

NARRATIVE: CASE EVENT DATE: 20230518
